FAERS Safety Report 21642270 (Version 2)
Quarter: 2022Q4

REPORT INFORMATION
  Report Type: Spontaneous
  Country: US (occurrence: US)
  Receive Date: 20221125
  Receipt Date: 20221215
  Transmission Date: 20230113
  Serious: No
  Sender: FDA-Public Use
  Company Number: US-BRISTOL-MYERS SQUIBB COMPANY-2022-143217

PATIENT
  Age: 65 Year
  Sex: Female

DRUGS (2)
  1. THALOMID [Suspect]
     Active Substance: THALIDOMIDE
     Indication: Oral candidiasis
     Route: 048
     Dates: start: 202210
  2. THALOMID [Suspect]
     Active Substance: THALIDOMIDE
     Indication: Gastrointestinal haemorrhage

REACTIONS (6)
  - Dizziness [Unknown]
  - Fatigue [Unknown]
  - Illness [Unknown]
  - Off label use [Unknown]
  - General physical health deterioration [Unknown]
  - Iron deficiency [Unknown]

NARRATIVE: CASE EVENT DATE: 20221001
